FAERS Safety Report 25839798 (Version 1)
Quarter: 2025Q3

REPORT INFORMATION
  Report Type: Spontaneous
  Country: US (occurrence: US)
  Receive Date: 20250924
  Receipt Date: 20250924
  Transmission Date: 20251020
  Serious: No
  Sender: SUNOVION
  Company Number: US-SMPA-2025SPA011909

PATIENT
  Age: 69 Year
  Sex: Male
  Weight: 140.59 kg

DRUGS (34)
  1. ORGOVYX [Suspect]
     Active Substance: RELUGOLIX
     Indication: Prostate cancer
     Dosage: 120 MG, QD
     Route: 048
     Dates: start: 20250820
  2. METOPROLOL [Concomitant]
     Active Substance: METOPROLOL
     Indication: Adverse event
     Dosage: 100 MG, QD
  3. FINASTERIDE [Concomitant]
     Active Substance: FINASTERIDE
     Indication: Urinary tract infection
     Dosage: 5 MG, QD
  4. GABAPENTIN [Concomitant]
     Active Substance: GABAPENTIN
     Indication: Fibromyalgia
     Dosage: 900 MG, TID
  5. VALSARTAN [Concomitant]
     Active Substance: VALSARTAN
     Indication: Blood pressure measurement
     Dosage: 160 MG, BID
  6. ACETAMINOPHEN AND CODEINE [Concomitant]
     Active Substance: ACETAMINOPHEN\CODEINE PHOSPHATE
     Indication: Fibromyalgia
  7. LIDOCAINE [Concomitant]
     Active Substance: LIDOCAINE
     Indication: Back pain
     Dosage: 5 % PATCH, ONCE A DAY
  8. SERTRALINE [Concomitant]
     Active Substance: SERTRALINE HYDROCHLORIDE
     Indication: Depression
     Dosage: 100 MG, QD
  9. BAQSIMI [Concomitant]
     Active Substance: GLUCAGON
     Indication: Dyspnoea
  10. AMLODIPINE [Concomitant]
     Active Substance: AMLODIPINE BESYLATE
     Indication: Cardiac disorder
  11. OZEMPIC [Concomitant]
     Active Substance: SEMAGLUTIDE
     Indication: Diabetes mellitus
  12. ATORVASTATIN [Concomitant]
     Active Substance: ATORVASTATIN
     Indication: Blood cholesterol
     Dosage: 80 MG, QD
  13. ATORVASTATIN [Concomitant]
     Active Substance: ATORVASTATIN
     Indication: Blood triglycerides
  14. FERROUS SULFATE [Concomitant]
     Active Substance: FERROUS SULFATE
     Indication: Red blood cell abnormality
     Dosage: 325 MG, QD
  15. NITROGLYCERIN [Concomitant]
     Active Substance: NITROGLYCERIN
     Indication: Chest pain
  16. TAMSULOSIN [Concomitant]
     Active Substance: TAMSULOSIN
     Indication: Prostatomegaly
     Dosage: 0.4 MG, QD
  17. TAMSULOSIN [Concomitant]
     Active Substance: TAMSULOSIN
     Indication: Urine flow decreased
  18. TORSEMIDE [Concomitant]
     Active Substance: TORSEMIDE
     Indication: Fluid retention
  19. HYDROCHLOROTHIAZIDE [Concomitant]
     Active Substance: HYDROCHLOROTHIAZIDE
     Indication: Cardiac disorder
     Dosage: 25 MG, QD
  20. QVAR REDIHALER [Concomitant]
     Active Substance: BECLOMETHASONE DIPROPIONATE
     Indication: Dyspnoea
  21. VITAMIN D3 [Concomitant]
     Active Substance: CHOLECALCIFEROL
     Indication: Supplementation therapy
  22. CHROMIUM PICOLINATE [Concomitant]
     Active Substance: CHROMIUM PICOLINATE
     Indication: Liver disorder
     Dosage: 200 ?G, BID
  23. FENOFIBRATE [Concomitant]
     Active Substance: FENOFIBRATE
     Indication: Blood cholesterol
     Dosage: 160 MG, QD
  24. FENOFIBRATE [Concomitant]
     Active Substance: FENOFIBRATE
     Indication: Blood triglycerides
  25. DIETARY SUPPLEMENT\HERBALS\MILK THISTLE [Concomitant]
     Active Substance: MILK THISTLE
     Indication: Blood glucose
     Dosage: 175 MG, QD
  26. VITAMIN B-COMPLEX [Concomitant]
     Active Substance: DEXPANTHENOL\NIACINAMIDE\PYRIDOXINE HYDROCHLORIDE\RIBOFLAVIN 5^-PHOSPHATE SODIUM\THIAMINE HYDROCHLOR
     Indication: Supplementation therapy
     Dosage: ONE TABLET DAILY
  27. EZETIMIBE [Concomitant]
     Active Substance: EZETIMIBE
  28. FISH OIL [Concomitant]
     Active Substance: FISH OIL
     Indication: Supplementation therapy
     Dosage: 1200 MG ONE CAPSULE TWICE DAILY
  29. TRESIBA [Concomitant]
     Active Substance: INSULIN DEGLUDEC
     Indication: Diabetes mellitus
  30. METFORMIN HYDROCHLORIDE [Concomitant]
     Active Substance: METFORMIN HYDROCHLORIDE
     Indication: Diabetes mellitus
  31. ASPIRIN [Concomitant]
     Active Substance: ASPIRIN
     Indication: Anticoagulant therapy
  32. INSULIN ASPART [Concomitant]
     Active Substance: INSULIN ASPART
     Indication: Blood glucose
  33. PANTOPRAZOLE [Concomitant]
     Active Substance: PANTOPRAZOLE
     Dosage: 40 MG, QD
  34. Mens 50+ Multivitamin [Concomitant]
     Indication: Supplementation therapy
     Dosage: ONE TABLET DAILY

REACTIONS (5)
  - Oedema [Unknown]
  - Blood glucose abnormal [Unknown]
  - Pain in extremity [Unknown]
  - Weight increased [Unknown]
  - Hot flush [Unknown]

NARRATIVE: CASE EVENT DATE: 20250824
